FAERS Safety Report 5679775-X (Version None)
Quarter: 2008Q1

REPORT INFORMATION
  Report Type: 
  Country: None (occurrence: None)
  Receive Date: 20080321
  Receipt Date: 20080306
  Transmission Date: 20080703
  Serious: Yes (Other)
  Sender: FDA-Public Use
  Company Number: DSA_31615_2008

PATIENT
  Age: 73 Year
  Sex: Male

DRUGS (8)
  1. HERBESSER (HERBESSER (TANABE) - DILTIAZEM HYDROCHLORIDE) (NOT SPECIFIE [Suspect]
     Indication: HYPERTENSION
     Dosage: (1350 MG QD INTRAVENOUS DRIP
     Route: 041
     Dates: start: 20080210, end: 20080214
  2. LACTEC [Concomitant]
  3. MANNITOL [Concomitant]
  4. UNASYN [Concomitant]
  5. PANTOL [Concomitant]
  6. RADICUT [Concomitant]
  7. SODIUM CHLORIDE [Concomitant]
  8. AMINO ACIDS/CARBOHYDRATES/MINERALS/VITAMINS [Concomitant]

REACTIONS (1)
  - ILEUS [None]
